FAERS Safety Report 13903293 (Version 3)
Quarter: 2017Q4

REPORT INFORMATION
  Report Type: Spontaneous
  Country: US (occurrence: US)
  Receive Date: 20170824
  Receipt Date: 20171018
  Transmission Date: 20180320
  Serious: Yes (Hospitalization, Other)
  Sender: FDA-Public Use
  Company Number: US-BAYER-2017-162587

PATIENT
  Age: 31 Year
  Sex: Female
  Weight: 78.46 kg

DRUGS (2)
  1. GADAVIST [Suspect]
     Active Substance: GADOBUTROL
     Indication: PITUITARY TUMOUR
  2. GADAVIST [Suspect]
     Active Substance: GADOBUTROL
     Indication: NUCLEAR MAGNETIC RESONANCE IMAGING
     Dosage: UNK, ONCE
     Route: 042
     Dates: start: 20170821, end: 20170821

REACTIONS (3)
  - Dyspnoea [None]
  - Contrast media reaction [None]
  - Cough [None]

NARRATIVE: CASE EVENT DATE: 20170821
